FAERS Safety Report 9491139 (Version 2)
Quarter: 2013Q3

REPORT INFORMATION
  Report Type: Report from Study
  Country: SE (occurrence: SE)
  Receive Date: 20130830
  Receipt Date: 20130910
  Transmission Date: 20140515
  Serious: Yes (Death)
  Sender: FDA-Public Use
  Company Number: SE-ASTELLAS-2013EU007388

PATIENT
  Age: 85 Year
  Sex: Male
  Weight: 78 kg

DRUGS (15)
  1. BLINDED ENZALUTAMIDE [Suspect]
     Indication: PROSTATE CANCER
     Dosage: 160 MG, UNKNOWN/D
     Route: 048
     Dates: start: 20111028, end: 20130807
  2. ATACAND PLUS [Concomitant]
     Indication: HYPERTENSION
     Dosage: 28.5 MG, UID/QD
     Route: 048
     Dates: start: 20130101, end: 20130807
  3. ATENOLOL [Concomitant]
     Indication: HYPERTENSION
     Dosage: 25 MG, UID/QD
     Route: 048
     Dates: start: 1995, end: 20130807
  4. LACTULOSE [Concomitant]
     Indication: CONSTIPATION
     Dosage: 15 ML, UNKNOWN/D
     Route: 048
  5. TROMBYL [Concomitant]
     Indication: HYPERTENSION
     Dosage: 75 MG, UID/QD
     Route: 048
     Dates: start: 20121220, end: 20130807
  6. PARACETAMOL [Concomitant]
     Indication: BACK PAIN
     Dosage: 665 MG, TID
     Route: 048
     Dates: start: 20130129, end: 20130807
  7. PREDNISOLONE [Concomitant]
     Dosage: 10 MG, UID/QD
     Route: 048
     Dates: start: 20130124, end: 201308
  8. PRIMPERAN [Concomitant]
     Indication: NAUSEA
     Dosage: 10 MG, UNKNOWN/D
     Route: 048
     Dates: start: 20130121, end: 20130807
  9. LAXOBERAL [Concomitant]
     Indication: CONSTIPATION
     Dosage: UNK
     Route: 048
     Dates: start: 20130129, end: 20130807
  10. OXYNORM [Concomitant]
     Indication: BACK PAIN
     Dosage: 5 MG, UNKNOWN/D
     Route: 048
     Dates: start: 201301, end: 20130807
  11. IMOVANE [Concomitant]
     Indication: SEDATION
     Dosage: 5 MG, UNKNOWN/D
     Route: 048
     Dates: start: 20130129, end: 20130807
  12. CYANOCOBALAMIN [Concomitant]
     Indication: PROPHYLAXIS
     Dosage: 2 MG, UID/QD
     Route: 048
     Dates: start: 20121019, end: 20130807
  13. NALOXONE [Concomitant]
     Indication: BONE PAIN
     Dosage: UNK
     Route: 048
     Dates: start: 20130504, end: 20130807
  14. OMEPRAZOL                          /00661201/ [Concomitant]
     Indication: PROPHYLAXIS
     Dosage: 40 DF, UID/QD
     Route: 048
     Dates: start: 20120827, end: 20130807
  15. HYDROCHLOROTHIAZIDE [Concomitant]
     Indication: HYPERTENSION
     Dosage: UNK
     Route: 048
     Dates: start: 20130101, end: 20130807

REACTIONS (1)
  - Disease progression [Fatal]
